FAERS Safety Report 10052625 (Version 1)
Quarter: 2014Q1

REPORT INFORMATION
  Report Type: Spontaneous
  Country: GB (occurrence: None)
  Receive Date: 20140331
  Receipt Date: 20140331
  Transmission Date: 20141002
  Serious: Yes (Other)
  Sender: FDA-Public Use
  Company Number: 2014GB00296

PATIENT
  Sex: Female

DRUGS (2)
  1. EPIRUBICIN HYDROCHLORIDE [Suspect]
     Dosage: 35 MG/M2, EVERY THREE WEEK, INFUSION
  2. JAVLOR (VINFLUNINE) [Suspect]
     Dosage: 250 MG/M2, EVERY THREE WEEKS, INFUSION

REACTIONS (1)
  - Ejection fraction decreased [None]
